FAERS Safety Report 16007142 (Version 1)
Quarter: 2019Q1

REPORT INFORMATION
  Report Type: Spontaneous
  Country: US (occurrence: US)
  Receive Date: 20190226
  Receipt Date: 20190226
  Transmission Date: 20190418
  Serious: Yes (Other)
  Sender: FDA-Public Use
  Company Number: US-PFIZER INC-2018518183

PATIENT
  Age: 76 Year
  Sex: Female
  Weight: 71.21 kg

DRUGS (1)
  1. SUTENT [Suspect]
     Active Substance: SUNITINIB MALATE
     Indication: SKIN CANCER
     Dosage: 25 MG, CYCLIC (FOR 14 DAYS, THEN OFF 7 DAYS)
     Route: 048
     Dates: end: 20190213

REACTIONS (2)
  - Aortic aneurysm [Unknown]
  - Product use in unapproved indication [Unknown]
